FAERS Safety Report 9107940 (Version 1)
Quarter: 2013Q1

REPORT INFORMATION
  Report Type: Spontaneous
  Country: US (occurrence: US)
  Receive Date: 20130221
  Receipt Date: 20130221
  Transmission Date: 20140127
  Serious: Yes (Other)
  Sender: FDA-Public Use
  Company Number: US-AMGEN-USASP2013010010

PATIENT
  Age: 58 Year
  Sex: Male
  Weight: 92.97 kg

DRUGS (5)
  1. ENBREL [Suspect]
     Indication: RHEUMATOID ARTHRITIS
     Dosage: 50 MG/ML, QWK
     Route: 058
  2. METHOTREXATE [Concomitant]
     Dosage: 2.5 MG, UNK
  3. VOLTAREN                           /00372301/ [Concomitant]
     Dosage: 1 %, UNK
  4. FOLIC ACID [Concomitant]
     Dosage: UNK
  5. ASPIRIN CHILDREN [Concomitant]
     Dosage: 81 MG, UNK

REACTIONS (1)
  - Myocardial infarction [Unknown]
